FAERS Safety Report 11779231 (Version 2)
Quarter: 2016Q1

REPORT INFORMATION
  Report Type: Spontaneous
  Country: US (occurrence: US)
  Receive Date: 20151125
  Receipt Date: 20160121
  Transmission Date: 20160525
  Serious: No
  Sender: FDA-Public Use
  Company Number: US-PFIZER INC-2015404416

PATIENT
  Age: 38 Year
  Sex: Female

DRUGS (1)
  1. BOSULIF [Suspect]
     Active Substance: BOSUTINIB MONOHYDRATE
     Indication: NEOPLASM MALIGNANT
     Dosage: 500 MG, 1X/DAY
     Route: 048
     Dates: start: 20150414, end: 20151119

REACTIONS (2)
  - Disease progression [Unknown]
  - Neoplasm malignant [Unknown]

NARRATIVE: CASE EVENT DATE: 20151119
